FAERS Safety Report 6863552-8 (Version None)
Quarter: 2010Q3

REPORT INFORMATION
  Report Type: 
  Country: None (occurrence: None)
  Receive Date: 20100721
  Receipt Date: 20080303
  Transmission Date: 20110219
  Serious: No
  Sender: FDA-Public Use
  Company Number: US-PFIZER INC-2008021868

PATIENT
  Sex: Female
  Weight: 52.2 kg

DRUGS (4)
  1. CHANTIX [Suspect]
     Indication: SMOKING CESSATION THERAPY
     Dates: start: 20080201
  2. DRUG, UNSPECIFIED [Concomitant]
  3. ORAL CONTRACEPTIVE NOS [Concomitant]
  4. VITAMINS [Concomitant]

REACTIONS (2)
  - INSOMNIA [None]
  - NAUSEA [None]
